FAERS Safety Report 13277039 (Version 1)
Quarter: 2017Q1

REPORT INFORMATION
  Report Type: Spontaneous
  Country: US (occurrence: US)
  Receive Date: 20170228
  Receipt Date: 20170228
  Transmission Date: 20170428
  Serious: Yes (Death, Hospitalization)
  Sender: FDA-Public Use
  Company Number: None

PATIENT
  Age: 66 Year
  Sex: Female

DRUGS (1)
  1. PRADAXA [Suspect]
     Active Substance: DABIGATRAN ETEXILATE MESYLATE

REACTIONS (12)
  - International normalised ratio increased [None]
  - Blood pressure decreased [None]
  - Abdominal pain [None]
  - Red blood cell count decreased [None]
  - Haemoglobin decreased [None]
  - Diarrhoea [None]
  - Vomiting [None]
  - Gastrointestinal haemorrhage [None]
  - Epistaxis [None]
  - Deep vein thrombosis [None]
  - Small intestinal obstruction [None]
  - Tachycardia [None]

NARRATIVE: CASE EVENT DATE: 20150519
